FAERS Safety Report 6045295-6 (Version None)
Quarter: 2009Q1

REPORT INFORMATION
  Report Type: 
  Country: None (occurrence: None)
  Receive Date: 20090121
  Receipt Date: 20090114
  Transmission Date: 20090719
  Serious: Yes (Death, Hospitalization, Other)
  Sender: FDA-Public Use
  Company Number: PHHY2009FR01850

PATIENT
  Sex: Female

DRUGS (11)
  1. LIORESAL [Suspect]
     Indication: MIGRAINE
     Dosage: 5 MG, TID
     Route: 048
     Dates: start: 20081025
  2. EFFEXOR [Suspect]
     Indication: ANXIETY
     Dosage: 75 MG, TID
     Route: 048
  3. EFFEXOR [Suspect]
     Indication: DEPRESSION
  4. AVLOCARDYL [Suspect]
     Indication: MIGRAINE
     Dosage: 40 MG, BID
     Route: 048
     Dates: start: 20081015
  5. INDORAMIN [Suspect]
     Indication: MIGRAINE
     Dosage: 0.5 DF, TID
     Route: 048
  6. ACUPAN [Suspect]
     Indication: MIGRAINE
     Dosage: 120 MG, QD
     Route: 042
     Dates: start: 20081102
  7. KETOPROFEN [Suspect]
     Indication: MIGRAINE
     Dosage: 100 MG, TID
     Route: 042
     Dates: start: 20081102
  8. PERFALGAN [Suspect]
     Indication: MIGRAINE
     Dosage: 4 G DAILY
     Route: 042
  9. TERCIAN [Concomitant]
     Dosage: 25 MG, TID
  10. THERALENE [Concomitant]
  11. LEXOMIL [Concomitant]

REACTIONS (7)
  - ANAEMIA [None]
  - CARDIAC ARREST [None]
  - CIRCULATORY COLLAPSE [None]
  - FALL [None]
  - MALAISE [None]
  - MIGRAINE [None]
  - RESUSCITATION [None]
